FAERS Safety Report 14487546 (Version 1)
Quarter: 2018Q1

REPORT INFORMATION
  Report Type: Spontaneous
  Country: US (occurrence: US)
  Receive Date: 20180204
  Receipt Date: 20180204
  Transmission Date: 20180509
  Serious: Yes (Other)
  Sender: FDA-Public Use
  Company Number: None

PATIENT
  Age: 34 Year
  Sex: Female
  Weight: 102.6 kg

DRUGS (1)
  1. SERTRALINE 50 MG [Suspect]
     Active Substance: SERTRALINE HYDROCHLORIDE
     Indication: CRANIOCEREBRAL INJURY
     Dosage: ?          QUANTITY:3 TABLET(S);?
     Route: 048
     Dates: start: 20171218, end: 20180204

REACTIONS (8)
  - Weight increased [None]
  - Pruritus generalised [None]
  - Urticaria [None]
  - Erythema [None]
  - Oedema [None]
  - Rash [None]
  - Drug ineffective [None]
  - Fluid retention [None]

NARRATIVE: CASE EVENT DATE: 20171218
